FAERS Safety Report 6647668-7 (Version None)
Quarter: 2010Q1

REPORT INFORMATION
  Report Type: 
  Country: None (occurrence: None)
  Receive Date: 20100323
  Receipt Date: 20100323
  Transmission Date: 20100710
  Serious: No
  Sender: FDA-Public Use
  Company Number: None

PATIENT
  Sex: Female
  Weight: 68.0396 kg

DRUGS (1)
  1. JANUMET [Suspect]
     Indication: DIABETES MELLITUS
     Dosage: 1 TABLET AM  1 TABLET PM
     Dates: start: 20090901, end: 20100301

REACTIONS (5)
  - FEELING ABNORMAL [None]
  - FLATULENCE [None]
  - HYPOGLYCAEMIA [None]
  - MYALGIA [None]
  - WEIGHT DECREASED [None]
